FAERS Safety Report 17406655 (Version 1)
Quarter: 2020Q1

REPORT INFORMATION
  Report Type: Spontaneous
  Country: US (occurrence: US)
  Receive Date: 20200212
  Receipt Date: 20200212
  Transmission Date: 20200409
  Serious: No
  Sender: FDA-Public Use
  Company Number: US-ALLERGAN-1939345US

PATIENT
  Age: 16 Year
  Sex: Female

DRUGS (3)
  1. BRIVIACT [Concomitant]
     Active Substance: BRIVARACETAM
     Dosage: UNK
  2. VIIBRYD [Suspect]
     Active Substance: VILAZODONE HYDROCHLORIDE
     Indication: DEPRESSION
     Dosage: 20 MG, QD
     Dates: start: 20190919
  3. VIIBRYD [Suspect]
     Active Substance: VILAZODONE HYDROCHLORIDE
     Indication: ANXIETY

REACTIONS (1)
  - Off label use [Unknown]
